FAERS Safety Report 5586800-3 (Version None)
Quarter: 2008Q1

REPORT INFORMATION
  Report Type: 
  Country: None (occurrence: None)
  Receive Date: 20080107
  Receipt Date: 20071227
  Transmission Date: 20080703
  Serious: Yes (Hospitalization)
  Sender: FDA-Public Use
  Company Number: 2007BI021994

PATIENT
  Age: 46 Year
  Sex: Female

DRUGS (13)
  1. TYSABRI [Suspect]
     Indication: MULTIPLE SCLEROSIS
     Dosage: 300 MG;QM;IV
     Route: 042
     Dates: start: 20070911, end: 20071004
  2. CEFAZOLIN [Concomitant]
  3. ZOPLICONE [Concomitant]
  4. HEPARIN [Concomitant]
  5. PAROXETINE [Concomitant]
  6. SENNA [Concomitant]
  7. RANITADINE [Concomitant]
  8. INSULIN [Concomitant]
  9. COMBIVENT [Concomitant]
  10. MAXALT [Concomitant]
  11. ALBUTEROL [Concomitant]
  12. LORAZEPAM [Concomitant]
  13. CLONAZEPAM [Concomitant]

REACTIONS (1)
  - RESPIRATORY FAILURE [None]
